FAERS Safety Report 10913074 (Version 1)
Quarter: 2015Q1

REPORT INFORMATION
  Report Type: Spontaneous
  Country: IN (occurrence: None)
  Receive Date: 20150310
  Receipt Date: 20150310
  Transmission Date: 20150721
  Serious: Yes (Hospitalization)
  Sender: FDA-Public Use
  Company Number: 2015-PEL-000558

PATIENT
  Age: 27 Year
  Sex: Female

DRUGS (4)
  1. ATRACURIUM (ATRACURIUM) [Suspect]
     Active Substance: ATRACURIUM
  2. SUCCINYLCHOLINE (SUXAMETHONIUM CHLORIDE) [Concomitant]
  3. THIOPENTAL SODIUM. [Concomitant]
     Active Substance: THIOPENTAL SODIUM
  4. ISOFLURANE. [Suspect]
     Active Substance: ISOFLURANE
     Indication: MAINTENANCE OF ANAESTHESIA

REACTIONS (3)
  - Shock haemorrhagic [None]
  - Postpartum haemorrhage [None]
  - Maternal exposure during delivery [None]
